FAERS Safety Report 6025816-X (Version None)
Quarter: 2008Q4

REPORT INFORMATION
  Report Type: 
  Country: None (occurrence: None)
  Receive Date: 20081224
  Receipt Date: 20081215
  Transmission Date: 20090506
  Serious: Yes (Hospitalization)
  Sender: FDA-Public Use
  Company Number: 2008US003160

PATIENT
  Age: 45 Year
  Sex: Male
  Weight: 97.1 kg

DRUGS (1)
  1. AMEVIVE [Suspect]
     Indication: PSORIASIS
     Dosage: 15 MG, WEEKLY, INTRAMUSCULAR
     Route: 030
     Dates: start: 20051130

REACTIONS (14)
  - ADRENAL DISORDER [None]
  - COLONIC STENOSIS [None]
  - CYSTITIS [None]
  - ESCHERICHIA SEPSIS [None]
  - FAILURE TO THRIVE [None]
  - GASTROENTERITIS RADIATION [None]
  - HEPATIC STEATOSIS [None]
  - LYMPHADENOPATHY [None]
  - MALNUTRITION [None]
  - NODULE [None]
  - PNEUMONIA [None]
  - PYELONEPHRITIS [None]
  - RADIATION INJURY [None]
  - RADIATION OESOPHAGITIS [None]
